FAERS Safety Report 19975074 (Version 5)
Quarter: 2023Q1

REPORT INFORMATION
  Report Type: Report from Study
  Country: CA (occurrence: CA)
  Receive Date: 20211020
  Receipt Date: 20230328
  Transmission Date: 20230417
  Serious: Yes (Other)
  Sender: FDA-Public Use
  Company Number: NVSC2021CA208814

PATIENT
  Age: 57 Year
  Sex: Male

DRUGS (5)
  1. ELTROMBOPAG OLAMINE [Suspect]
     Active Substance: ELTROMBOPAG OLAMINE
     Indication: Immune thrombocytopenia
     Dosage: 50 MG, QD (25 MG ON MONDAYS AND 50 MG DAILY FOR REST OF THE WEEK)
     Route: 048
     Dates: start: 20210804
  2. ELTROMBOPAG OLAMINE [Suspect]
     Active Substance: ELTROMBOPAG OLAMINE
     Dosage: 25 MG ONCE A DAY EVERY MONDAYS AND THURSDAYS AND THE REMAINING DAYS TAKES 50 MG ONCE A DAY
     Route: 065
  3. ELTROMBOPAG OLAMINE [Suspect]
     Active Substance: ELTROMBOPAG OLAMINE
     Dosage: 25 MG FOR 4 DAYS OF THE WEEK
     Route: 065
  4. ELTROMBOPAG OLAMINE [Suspect]
     Active Substance: ELTROMBOPAG OLAMINE
     Dosage: 50 MG AND 25 MG ALTERNATING DAYS, 5 DAYS OF 25 MG AND 2 DAYS OF 50 MG
     Route: 048
  5. RITUXIMAB [Suspect]
     Active Substance: RITUXIMAB
     Indication: Product used for unknown indication
     Dosage: UNK (4 WEEK TREATMENT)
     Route: 065

REACTIONS (4)
  - Loss of consciousness [Unknown]
  - Heart rate decreased [Unknown]
  - Platelet count abnormal [Unknown]
  - Platelet count increased [Unknown]
